FAERS Safety Report 6249102-8 (Version None)
Quarter: 2009Q2

REPORT INFORMATION
  Report Type: 
  Country: None (occurrence: None)
  Receive Date: 20090629
  Receipt Date: 20090622
  Transmission Date: 20091009
  Serious: Yes (Death)
  Sender: FDA-Public Use
  Company Number: US-GILEAD-2009-0022712

PATIENT
  Sex: Male
  Weight: 60.836 kg

DRUGS (16)
  1. LETAIRIS [Suspect]
     Indication: PULMONARY ARTERIAL HYPERTENSION
     Dates: start: 20090430, end: 20090622
  2. DIGOXIN [Concomitant]
  3. FUROSEMIDE INTENSOL [Concomitant]
  4. METOLAZONE [Concomitant]
  5. PROCRIT [Concomitant]
  6. VENTAVIS [Concomitant]
  7. REVATIO [Concomitant]
  8. ALBUTEROL SULFATE [Concomitant]
  9. FLOMAX [Concomitant]
  10. DAILY MULTIVITAMIN [Concomitant]
  11. PERCOCET [Concomitant]
  12. METROGEL [Concomitant]
  13. NEXIUM [Concomitant]
  14. IRON [Concomitant]
  15. FLUOCINONIDE 0.5% [Concomitant]
  16. AMBIEN [Concomitant]

REACTIONS (1)
  - DEATH [None]
